FAERS Safety Report 13782672 (Version 3)
Quarter: 2017Q3

REPORT INFORMATION
  Report Type: Spontaneous
  Country: IT (occurrence: IT)
  Receive Date: 20170724
  Receipt Date: 20170818
  Transmission Date: 20171127
  Serious: Yes (Hospitalization, Other)
  Sender: FDA-Public Use
  Company Number: IT-PFIZER INC-2017316587

PATIENT
  Age: 38 Year
  Sex: Female

DRUGS (2)
  1. SENNA /00142201/ [Suspect]
     Active Substance: SENNA LEAF
     Indication: DRUG ABUSE
     Dosage: UNK (CONTINUOUS ABUSE)
  2. FUROSEMIDE. [Suspect]
     Active Substance: FUROSEMIDE
     Indication: DRUG ABUSE
     Dosage: UNK (CONTINUOUS ABUSE)

REACTIONS (3)
  - Drug abuse [Unknown]
  - Paralysis [Recovered/Resolved]
  - Hypokalaemia [Recovered/Resolved]
